FAERS Safety Report 4655900-4 (Version None)
Quarter: 2005Q2

REPORT INFORMATION
  Report Type: 
  Country: None (occurrence: None)
  Receive Date: 20050505
  Receipt Date: 20050420
  Transmission Date: 20051028
  Serious: Yes (Life-Threatening, Other)
  Sender: FDA-Public Use
  Company Number: JP_050306181

PATIENT
  Age: 72 Year
  Sex: Male
  Weight: 52 kg

DRUGS (4)
  1. GEMZAR [Suspect]
     Indication: PANCREATIC CARCINOMA
     Dosage: 1400 MG OTHER
     Route: 050
     Dates: start: 20050317, end: 20050317
  2. SULPERAZON [Concomitant]
  3. KYTRIL [Concomitant]
  4. DECADRON [Concomitant]

REACTIONS (5)
  - CATHETER SITE HAEMORRHAGE [None]
  - DISSEMINATED INTRAVASCULAR COAGULATION [None]
  - HAEMOLYTIC ANAEMIA [None]
  - HAEMOLYTIC URAEMIC SYNDROME [None]
  - LIVER DISORDER [None]
